FAERS Safety Report 24363826 (Version 1)
Quarter: 2024Q3

REPORT INFORMATION
  Report Type: Report from Study
  Country: PT (occurrence: KR)
  Receive Date: 20240925
  Receipt Date: 20240925
  Transmission Date: 20241016
  Serious: Yes (Hospitalization, Other)
  Sender: SUNOVION
  Company Number: KR-BIAL-BIAL-17032

PATIENT

DRUGS (24)
  1. ESLICARBAZEPINE ACETATE [Suspect]
     Active Substance: ESLICARBAZEPINE ACETATE
     Indication: Epilepsy
     Dosage: 200 MILLIGRAM, QD
     Route: 048
     Dates: start: 20240322, end: 20240322
  2. ESLICARBAZEPINE ACETATE [Suspect]
     Active Substance: ESLICARBAZEPINE ACETATE
     Dosage: 300 MILLIGRAM, QD
     Route: 048
     Dates: start: 20240323, end: 20240323
  3. ESLICARBAZEPINE ACETATE [Suspect]
     Active Substance: ESLICARBAZEPINE ACETATE
     Dosage: 400 MILLIGRAM, QD
     Route: 048
     Dates: start: 20240324, end: 20240401
  4. ESLICARBAZEPINE ACETATE [Suspect]
     Active Substance: ESLICARBAZEPINE ACETATE
     Dosage: 500 MILLIGRAM, QD
     Route: 048
     Dates: start: 20240402, end: 20240605
  5. ESLICARBAZEPINE ACETATE [Suspect]
     Active Substance: ESLICARBAZEPINE ACETATE
     Dosage: 400 MILLIGRAM, QD
     Route: 048
     Dates: start: 20240606, end: 20240606
  6. ESLICARBAZEPINE ACETATE [Suspect]
     Active Substance: ESLICARBAZEPINE ACETATE
     Dosage: 300 MILLIGRAM, QD
     Route: 048
     Dates: start: 20240607, end: 20240607
  7. ESLICARBAZEPINE ACETATE [Suspect]
     Active Substance: ESLICARBAZEPINE ACETATE
     Dosage: 200 MILLIGRAM, QD
     Route: 048
     Dates: start: 20240608, end: 20240608
  8. ESLICARBAZEPINE ACETATE [Suspect]
     Active Substance: ESLICARBAZEPINE ACETATE
     Dosage: 100 MILLIGRAM, QD
     Route: 048
     Dates: start: 20240609, end: 20240610
  9. ZONISAMIDE [Concomitant]
     Active Substance: ZONISAMIDE
     Indication: Epilepsy
     Dosage: 0.75 DOSAGE FORM, BID
     Route: 048
     Dates: start: 20240131, end: 20240414
  10. ZONISAMIDE [Concomitant]
     Active Substance: ZONISAMIDE
     Dosage: 1 DOSAGE FORM, BID
     Route: 048
     Dates: start: 20240415, end: 20240512
  11. ZONISAMIDE [Concomitant]
     Active Substance: ZONISAMIDE
     Dosage: 1.5 DOSAGE FORM, QD
     Route: 048
     Dates: start: 20240513, end: 20240605
  12. KEPPRA [Concomitant]
     Active Substance: LEVETIRACETAM
     Indication: Epilepsy
     Dosage: 1.5 DOSAGE FORM, BID
     Route: 048
     Dates: start: 20240305, end: 20240512
  13. KEPPRA [Concomitant]
     Active Substance: LEVETIRACETAM
     Dosage: 1 DOSAGE FORM, BID
     Route: 048
     Dates: start: 20240513, end: 20240519
  14. KEPPRA [Concomitant]
     Active Substance: LEVETIRACETAM
     Dosage: 1.5 DOSAGE FORM, BID
     Route: 048
     Dates: start: 20240606
  15. CLOBAZAM [Concomitant]
     Active Substance: CLOBAZAM
     Indication: Epilepsy
     Dosage: 1 DOSAGE FORM, QD
     Route: 048
     Dates: start: 20240607
  16. MELATONIN [Concomitant]
     Active Substance: MELATONIN
     Indication: Prophylaxis
     Dosage: 5 DOSAGE FORM, QD
     Route: 048
     Dates: start: 20240322, end: 20240322
  17. BEECOM [Concomitant]
     Indication: Prophylaxis
     Dosage: 1 DOSAGE FORM, BID
     Route: 048
     Dates: start: 20240322, end: 20240607
  18. L-CARN [Concomitant]
     Indication: Prophylaxis
     Dosage: 1 DOSAGE FORM, BID
     Route: 048
     Dates: start: 20240322, end: 20240325
  19. RAMNOS [Concomitant]
     Indication: Prophylaxis
     Dosage: 1 DOSAGE FORM, BID
     Route: 048
     Dates: start: 20240322
  20. BOLGRE [Concomitant]
     Indication: Iron deficiency anaemia
     Dosage: 1 DOSAGE FORM, QD
     Route: 048
     Dates: start: 20240322
  21. MUCOPECT [Concomitant]
     Indication: Prophylaxis
     Dosage: 0.66 DOSAGE FORM, TID
     Route: 048
     Dates: start: 20240520, end: 20240605
  22. SUDAFED [Concomitant]
     Active Substance: PSEUDOEPHEDRINE HYDROCHLORIDE
     Indication: Prophylaxis
     Dosage: 0.5 DOSAGE FORM, TID
     Route: 048
     Dates: start: 20240520, end: 20240531
  23. LEVODROPROPIZINE [Concomitant]
     Active Substance: LEVODROPROPIZINE
     Indication: Prophylaxis
     Dosage: 5 MILLILITER, TID
     Route: 048
     Dates: start: 20240520, end: 20240521
  24. LEBROCOL [Concomitant]
     Indication: Prophylaxis
     Dosage: 0.5 DOSAGE FORM, TID
     Route: 048
     Dates: start: 20240521, end: 20240531

REACTIONS (3)
  - Epilepsy [Recovered/Resolved]
  - Epilepsy [Recovered/Resolved]
  - Drug ineffective [Unknown]

NARRATIVE: CASE EVENT DATE: 20240520
